FAERS Safety Report 8647697 (Version 2)
Quarter: 2013Q1

REPORT INFORMATION
  Report Type: Spontaneous
  Country: US (occurrence: US)
  Receive Date: 20120703
  Receipt Date: 20130314
  Transmission Date: 20140127
  Serious: Yes (Other)
  Sender: FDA-Public Use
  Company Number: US-ROCHE-1056715

PATIENT
  Age: 16 Year
  Sex: Male
  Weight: 72.64 kg

DRUGS (3)
  1. ACCUTANE [Suspect]
     Indication: ACNE
     Dosage: 40 MG IN MORNING AND 20 MG EVENING
     Route: 065
     Dates: start: 200109, end: 2002
  2. ACCUTANE [Suspect]
     Route: 065
     Dates: end: 200312
  3. ALLEGRA [Concomitant]
     Route: 065
     Dates: start: 2000

REACTIONS (7)
  - Inflammatory bowel disease [Unknown]
  - Crohn^s disease [Unknown]
  - Irritable bowel syndrome [Unknown]
  - Dyspepsia [Unknown]
  - Suicide attempt [Unknown]
  - Lip dry [Unknown]
  - Dry skin [Unknown]
